FAERS Safety Report 7556431-4 (Version None)
Quarter: 2011Q2

REPORT INFORMATION
  Report Type: 
  Country: None (occurrence: None)
  Receive Date: 20110620
  Receipt Date: 20110610
  Transmission Date: 20111010
  Serious: Yes (Hospitalization, Other)
  Sender: FDA-Public Use
  Company Number: JP-ASTELLAS-2011JP003407

PATIENT
  Sex: Female
  Weight: 15.1 kg

DRUGS (16)
  1. PROGRAF [Suspect]
     Dosage: 0.7 MG, BID
     Route: 048
     Dates: start: 20070605
  2. FLOMAX [Concomitant]
     Indication: GASTROENTERITIS
     Dosage: 45 MG, TID
     Route: 048
     Dates: start: 20110419, end: 20110504
  3. PYRINAZIN [Concomitant]
     Indication: UPPER RESPIRATORY TRACT INFLAMMATION
  4. HOKUNALIN [Concomitant]
     Indication: UPPER RESPIRATORY TRACT INFLAMMATION
  5. PROGRAF [Suspect]
     Dosage: 0.7 MG, BID
     Route: 048
     Dates: end: 20110502
  6. LAC B [Concomitant]
     Indication: UPPER RESPIRATORY TRACT INFLAMMATION
  7. MUCODYNE [Concomitant]
     Indication: GASTROENTERITIS
     Dosage: 40 MG, TID
     Route: 048
     Dates: start: 20110428
  8. PROGRAF [Suspect]
     Dosage: 1 MG, UNKNOWN/D
     Route: 048
     Dates: end: 20110420
  9. PROGRAF [Suspect]
     Dosage: 0.7 MG, UID/QD
     Route: 048
     Dates: start: 20110503, end: 20110504
  10. FLOMAX [Concomitant]
     Indication: UPPER RESPIRATORY TRACT INFLAMMATION
  11. PYRINAZIN [Concomitant]
     Indication: GASTROENTERITIS
     Dosage: 0.1 G, BID
     Route: 065
     Dates: start: 20110419, end: 20110425
  12. LAC B [Concomitant]
     Indication: GASTROENTERITIS
     Dosage: 0.4 G, TID
     Route: 048
     Dates: start: 20110419, end: 20110504
  13. MUCODYNE [Concomitant]
     Indication: UPPER RESPIRATORY TRACT INFLAMMATION
  14. HOKUNALIN [Concomitant]
     Indication: GASTROENTERITIS
     Dosage: 1 MG, UID/QD
     Route: 062
     Dates: start: 20110504
  15. PROGRAF [Suspect]
     Dosage: 1.4 MG, UNKNOWN/D
     Route: 048
     Dates: start: 20110421
  16. PROGRAF [Suspect]
     Indication: CONGENITAL ABSENCE OF BILE DUCTS
     Dosage: 0.7 MG, BID
     Route: 048
     Dates: start: 20110505, end: 20110506

REACTIONS (4)
  - DRUG LEVEL INCREASED [None]
  - UPPER RESPIRATORY TRACT INFLAMMATION [None]
  - GASTROENTERITIS [None]
  - OTITIS MEDIA ACUTE [None]
